FAERS Safety Report 6724321-2 (Version None)
Quarter: 2010Q2

REPORT INFORMATION
  Report Type: 
  Country: None (occurrence: None)
  Receive Date: 20100513
  Receipt Date: 20100505
  Transmission Date: 20101027
  Serious: Yes (Hospitalization)
  Sender: FDA-Public Use
  Company Number: FR-BRISTOL-MYERS SQUIBB COMPANY-15093701

PATIENT
  Age: 75 Year
  Sex: Female

DRUGS (2)
  1. FUNGIZONE [Suspect]
     Dates: end: 20100317
  2. OFLOCET [Suspect]
     Indication: URINARY TRACT INFECTION
     Route: 048
     Dates: start: 20100303, end: 20100325

REACTIONS (4)
  - ABDOMINAL PAIN [None]
  - HAEMOLYTIC ANAEMIA [None]
  - URINARY TRACT INFECTION BACTERIAL [None]
  - VOMITING [None]
